FAERS Safety Report 16943118 (Version 1)
Quarter: 2019Q4

REPORT INFORMATION
  Report Type: Spontaneous
  Country: GR (occurrence: GR)
  Receive Date: 20191021
  Receipt Date: 20191021
  Transmission Date: 20200122
  Serious: Yes (Other)
  Sender: FDA-Public Use
  Company Number: GR-CELLTRION INC.-2019GR025595

PATIENT

DRUGS (2)
  1. INFLIXIMAB (UNKNOWN) [Suspect]
     Active Substance: INFLIXIMAB
     Indication: CROHN^S DISEASE
     Dosage: DOSAGE FORM: LYOPHILIZED POWDER
     Route: 042
  2. AZATHIOPRINE. [Suspect]
     Active Substance: AZATHIOPRINE
     Indication: CROHN^S DISEASE
     Dosage: DOSAGE FORM: UNSPECIFIED
     Route: 065

REACTIONS (4)
  - Hypoaesthesia [Recovering/Resolving]
  - Eye pain [Recovering/Resolving]
  - Demyelination [Recovering/Resolving]
  - Microangiopathy [Recovering/Resolving]
